FAERS Safety Report 5159160-X (Version None)
Quarter: 2006Q4

REPORT INFORMATION
  Report Type: 
  Country: None (occurrence: None)
  Receive Date: 20061128
  Receipt Date: 20061120
  Transmission Date: 20070319
  Serious: Yes (Hospitalization)
  Sender: FDA-Public Use
  Company Number: FR-GILEAD-2006-0010700

PATIENT
  Sex: Male
  Weight: 65 kg

DRUGS (11)
  1. TRUVADA [Suspect]
     Route: 048
     Dates: start: 20060920, end: 20061027
  2. NORVIR [Suspect]
     Route: 048
     Dates: start: 20060920, end: 20061027
  3. KALETRA [Suspect]
     Route: 048
     Dates: start: 20060920, end: 20061027
  4. APTIVUS [Suspect]
     Route: 048
     Dates: start: 20060920, end: 20061027
  5. ZERIT [Concomitant]
  6. EPIVIR [Concomitant]
  7. TOPLEXIL [Concomitant]
     Dates: end: 20061009
  8. RHINOFEBRAL [Concomitant]
  9. ACTISOUFRE [Concomitant]
     Route: 045
  10. DOLIPRANE [Concomitant]
  11. PNEUMOREL [Concomitant]
     Dates: start: 20061009

REACTIONS (7)
  - ABDOMINAL PAIN [None]
  - CYTOLYTIC HEPATITIS [None]
  - HEADACHE [None]
  - JAUNDICE [None]
  - LIVER DISORDER [None]
  - NASOPHARYNGITIS [None]
  - VOMITING [None]
